FAERS Safety Report 19017195 (Version 1)
Quarter: 2021Q1

REPORT INFORMATION
  Report Type: Spontaneous
  Country: US (occurrence: US)
  Receive Date: 20210316
  Receipt Date: 20210316
  Transmission Date: 20210420
  Serious: No
  Sender: FDA-Public Use
  Company Number: US-GALDERMA-US2020047443

PATIENT
  Sex: Female

DRUGS (1)
  1. DIFFERIN GEL [Suspect]
     Active Substance: ADAPALENE
     Indication: ACANTHOSIS NIGRICANS
     Dosage: 0.1%
     Route: 061

REACTIONS (2)
  - Intentional product misuse [Recovered/Resolved]
  - Drug ineffective for unapproved indication [Recovered/Resolved]
